FAERS Safety Report 8071220-2 (Version None)
Quarter: 2012Q1

REPORT INFORMATION
  Report Type: 
  Country: None (occurrence: None)
  Receive Date: 20120125
  Receipt Date: 20120119
  Transmission Date: 20120608
  Serious: Yes (Hospitalization, Other)
  Sender: FDA-Public Use
  Company Number: PHEH2007US05483

PATIENT
  Sex: Female
  Weight: 93 kg

DRUGS (56)
  1. CIPROFLOXACIN [Concomitant]
  2. ZYLOPRIM [Concomitant]
     Dosage: 300 MG, QD
     Route: 048
  3. PHENERGAN [Concomitant]
     Dosage: 25 MG, Q6H
  4. ADRIAMYCIN PFS [Concomitant]
  5. PEPCID [Concomitant]
     Dosage: 40 MG, PRN
  6. INTERFERON [Concomitant]
     Dosage: UNK
  7. PROZAC [Concomitant]
     Dosage: 20 MG, UNK
  8. BENADRYL ^PFIZER WARNER-LAMBERT^ [Concomitant]
     Dosage: 25 MG, UNK
  9. MORPHINE [Concomitant]
  10. PERCOCET [Concomitant]
     Route: 048
  11. SIMETHICONE [Concomitant]
     Dosage: UNK
     Route: 048
  12. FILGRASTIM [Concomitant]
  13. MS CONTIN [Concomitant]
     Dosage: 30 MG, UNK
  14. SENOKOT                                 /UNK/ [Concomitant]
     Dosage: UNK
  15. ACETAMINOPHEN [Concomitant]
     Dosage: UNK,
  16. PERIDEX [Concomitant]
  17. DOCUSATE [Concomitant]
     Dosage: 100 MG, BID
  18. LORTAB [Concomitant]
     Dosage: 7.5 MG, PRN
  19. PROCRIT                            /00909301/ [Concomitant]
     Dosage: UNK
  20. LIPITOR [Concomitant]
  21. DURAGESIC-100 [Concomitant]
     Dosage: UNK
  22. SEPTRA DS [Concomitant]
     Dosage: UNK
  23. LOMOTIL [Concomitant]
     Dosage: 5 MG, UNK
  24. CHLORHEXIDINE GLUCONATE [Concomitant]
     Dosage: 15 ML, Q12H
  25. ZOVIRAX [Concomitant]
     Dosage: 200 MG, Q12H
     Route: 048
  26. ONDANSETRON HCL [Concomitant]
     Dosage: 24 MG
     Route: 048
  27. AREDIA [Suspect]
     Dosage: 90 MG, QMO
     Route: 042
     Dates: start: 19980627
  28. AMBIEN [Concomitant]
     Dosage: 10 MG, UNK
  29. POTASSIUM CHLORIDE [Concomitant]
     Dosage: UNK
  30. XANAX [Concomitant]
     Dosage: 0.5 MG, UNK
     Route: 048
  31. MAGNESIUM SULFATE [Concomitant]
     Dosage: PRN
  32. ATROPINE [Concomitant]
     Dosage: UNK
     Route: 048
  33. VINCRISTINE [Concomitant]
  34. COUMADIN [Concomitant]
     Dosage: 2.5 MG, DAILY
  35. PRILOSEC [Concomitant]
     Dosage: 20 MG, PRN
  36. ASCORBIC ACID [Concomitant]
     Dosage: UNK
  37. LEVAQUIN [Concomitant]
     Dosage: 500 MG, DAILY
  38. FLAGYL [Concomitant]
     Dosage: 250 MG, TID
  39. NYSTATIN [Concomitant]
     Dosage: 5 ML, UNK
     Route: 048
  40. SODIUM CHLORIDE [Concomitant]
  41. LASIX [Concomitant]
     Dosage: 20 MG, PRN
     Route: 042
  42. PROMETHAZINE [Concomitant]
     Route: 042
  43. DIPHENHYDRAMINE HCL [Concomitant]
     Route: 042
  44. DICYCLOMINE [Concomitant]
     Dosage: UNK
     Route: 048
  45. MIRALAX [Concomitant]
     Dosage: UNK
  46. POTASSIUM CHLORIDE [Concomitant]
     Dosage: UNK
  47. DECADRON [Concomitant]
  48. ACYCLOVIR [Concomitant]
     Route: 048
  49. ALLOPURINOL [Concomitant]
     Dosage: 300 MG, UNK
     Route: 048
  50. ZOMETA [Suspect]
     Dosage: UNK
     Dates: start: 20011201
  51. BEXTRA [Concomitant]
  52. COMPAZINE [Concomitant]
     Dosage: UNK
  53. ESTRACE [Concomitant]
     Dosage: 1 MG, QHS
     Route: 048
  54. ACETAMINOPHEN [Concomitant]
     Dosage: 650 MG, UNK
     Route: 048
  55. ALKERAN [Concomitant]
     Dosage: 172 MG, UNK
  56. PENTAZOCINE LACTATE [Concomitant]
     Dosage: 30 MG
     Route: 042

REACTIONS (100)
  - OSTEONECROSIS OF JAW [None]
  - MYALGIA [None]
  - CONSTIPATION [None]
  - DYSPEPSIA [None]
  - NAUSEA [None]
  - OESOPHAGEAL SPASM [None]
  - OEDEMA PERIPHERAL [None]
  - URINARY RETENTION [None]
  - HYPOGAMMAGLOBULINAEMIA [None]
  - TUBULOINTERSTITIAL NEPHRITIS [None]
  - METABOLIC ACIDOSIS [None]
  - CONTUSION [None]
  - ABDOMINAL PAIN [None]
  - INSOMNIA [None]
  - GASTROENTERITIS BACTERIAL [None]
  - OESOPHAGEAL PAIN [None]
  - BLOOD ALKALINE PHOSPHATASE INCREASED [None]
  - OROPHARYNGEAL PAIN [None]
  - IRRITABILITY [None]
  - MUSCULOSKELETAL PAIN [None]
  - BONE PAIN [None]
  - SINUS TACHYCARDIA [None]
  - SLEEP APNOEA SYNDROME [None]
  - MIGRAINE [None]
  - NEUROPATHY PERIPHERAL [None]
  - LUMBAR RADICULOPATHY [None]
  - RENAL TUBULAR NECROSIS [None]
  - TRICUSPID VALVE INCOMPETENCE [None]
  - BLOOD PRESSURE INCREASED [None]
  - HEAD INJURY [None]
  - ASTHMA [None]
  - OESOPHAGEAL CANDIDIASIS [None]
  - INJURY [None]
  - DYSPNOEA [None]
  - LIGHT CHAIN ANALYSIS INCREASED [None]
  - ORAL HERPES [None]
  - BREAST TENDERNESS [None]
  - IMMUNODEFICIENCY [None]
  - DECREASED APPETITE [None]
  - LEUKOPENIA [None]
  - PAIN IN EXTREMITY [None]
  - OESOPHAGEAL STENOSIS [None]
  - PROTEINURIA [None]
  - BACK PAIN [None]
  - NASAL CONGESTION [None]
  - ARTHRALGIA [None]
  - HYPERLIPIDAEMIA [None]
  - BRONCHOPNEUMONIA [None]
  - HYPOTHYROIDISM [None]
  - GLOMERULOSCLEROSIS [None]
  - PNEUMONIA [None]
  - GASTRODUODENITIS [None]
  - ORAL PAIN [None]
  - PAIN [None]
  - DYSPHAGIA [None]
  - COMPRESSION FRACTURE [None]
  - MUSCULOSKELETAL STIFFNESS [None]
  - BREAST PAIN [None]
  - THROMBOCYTOPENIA [None]
  - RENAL IMPAIRMENT [None]
  - STREPTOCOCCAL SEPSIS [None]
  - GLOMERULONEPHRITIS [None]
  - FALL [None]
  - RENAL FAILURE ACUTE [None]
  - DIARRHOEA [None]
  - FOOT DEFORMITY [None]
  - AZOTAEMIA [None]
  - ANXIETY [None]
  - OSTEOLYSIS [None]
  - CHEST PAIN [None]
  - FATIGUE [None]
  - PANCYTOPENIA [None]
  - RENAL FAILURE CHRONIC [None]
  - SUPERIOR VENA CAVA SYNDROME [None]
  - RESTLESS LEGS SYNDROME [None]
  - MYOFASCIAL PAIN SYNDROME [None]
  - RENAL FAILURE [None]
  - HYPERTENSION [None]
  - PYREXIA [None]
  - NOCTURIA [None]
  - MUSCLE SPASMS [None]
  - NECK PAIN [None]
  - NEUTROPENIA [None]
  - BRONCHITIS [None]
  - RECTAL HAEMORRHAGE [None]
  - GASTRITIS [None]
  - PRESYNCOPE [None]
  - HYPOKALAEMIA [None]
  - MULTIPLE MYELOMA [None]
  - TUMOUR PAIN [None]
  - BLOOD CREATININE INCREASED [None]
  - BREAST MASS [None]
  - ASTHENIA [None]
  - OSTEOPENIA [None]
  - VENA CAVA THROMBOSIS [None]
  - SENSATION OF FOREIGN BODY [None]
  - ODYNOPHAGIA [None]
  - DEHYDRATION [None]
  - LACTOSE INTOLERANCE [None]
  - MUSCULAR WEAKNESS [None]
